FAERS Safety Report 10504189 (Version 2)
Quarter: 2014Q4

REPORT INFORMATION
  Report Type: Spontaneous
  Country: US (occurrence: US)
  Receive Date: 20141008
  Receipt Date: 20141008
  Transmission Date: 20150528
  Serious: No
  Sender: FDA-Public Use
  Company Number: US-BEH-2014042102

PATIENT
  Sex: Male
  Weight: 85 kg

DRUGS (15)
  1. DIAZEPAM. [Concomitant]
     Active Substance: DIAZEPAM
     Route: 048
  2. OXYBUTYNIN [Concomitant]
     Active Substance: OXYBUTYNIN
     Route: 048
     Dates: start: 20130829
  3. PRIVIGEN [Suspect]
     Active Substance: HUMAN IMMUNOGLOBULIN G
     Indication: STIFF PERSON SYNDROME
     Dosage: STOPPED OCT-2013
     Route: 042
  4. BACLOFEN. [Concomitant]
     Active Substance: BACLOFEN
     Indication: MUSCLE SPASMS
     Route: 048
     Dates: start: 20130930
  5. IMITREX [Concomitant]
     Active Substance: SUMATRIPTAN\SUMATRIPTAN SUCCINATE
     Indication: HEADACHE
     Dosage: MAY REPEAT AFTER 2 HOURS IF HEADACHE RETURNS.  NOT TO EXCEED 200 MG IN 24 HOURS
     Route: 048
     Dates: start: 20130918
  6. NAPROXEN SODIUM. [Concomitant]
     Active Substance: NAPROXEN SODIUM
     Route: 048
  7. FLONASE [Concomitant]
     Active Substance: FLUTICASONE PROPIONATE
     Dosage: 50 MCG SPRAY, 2 SPRAYS DAILY
     Route: 055
  8. ZIPSOR [Concomitant]
     Active Substance: DICLOFENAC POTASSIUM
     Indication: HEADACHE
     Dosage: NOT TO EXCEED 3 PER DAY/8 PER WEEK
     Route: 048
     Dates: start: 20130918
  9. PRIVIGEN [Suspect]
     Active Substance: HUMAN IMMUNOGLOBULIN G
     Indication: STIFF PERSON SYNDROME
     Dosage: STOPPED OCT-2013
     Route: 042
  10. LISINOPRIL. [Concomitant]
     Active Substance: LISINOPRIL
     Route: 048
  11. PROZAC [Concomitant]
     Active Substance: FLUOXETINE HYDROCHLORIDE
     Route: 048
  12. LEVOXYL [Concomitant]
     Active Substance: LEVOTHYROXINE SODIUM
     Route: 048
  13. SYNTHROID [Concomitant]
     Active Substance: LEVOTHYROXINE SODIUM
     Route: 048
  14. OMEPRAZOLE. [Concomitant]
     Active Substance: OMEPRAZOLE
     Route: 048
  15. VICODIN ES [Concomitant]
     Active Substance: ACETAMINOPHEN\HYDROCODONE BITARTRATE
     Indication: HEADACHE
     Dosage: 7.5 MG-300 MG
     Route: 048
     Dates: start: 20130918

REACTIONS (2)
  - Product use issue [Unknown]
  - No adverse event [Unknown]
